FAERS Safety Report 10810899 (Version 1)
Quarter: 2015Q1

REPORT INFORMATION
  Report Type: Spontaneous
  Country: US (occurrence: None)
  Receive Date: 20150213
  Receipt Date: 20150213
  Transmission Date: 20150721
  Serious: No
  Sender: FDA-Public Use
  Company Number: None

PATIENT
  Age: 62 Year
  Sex: Male
  Weight: 88.45 kg

DRUGS (22)
  1. NITROGLYCERIN TRANSDERMAL DELIVERY SYSTEM [Suspect]
     Active Substance: NITROGLYCERIN
     Indication: PROPHYLAXIS
     Route: 062
     Dates: start: 20141218, end: 20150118
  2. VITAMIN E [Concomitant]
     Active Substance: .ALPHA.-TOCOPHEROL
  3. CARVEDILOL. [Concomitant]
     Active Substance: CARVEDILOL
  4. GLYCERYL TRINITRATE [Concomitant]
     Active Substance: NITROGLYCERIN
  5. CENTRUM MULTIPLE VITAMINS WITH MINERALS [Concomitant]
     Active Substance: MINERALS\VITAMINS
  6. BEE POLLEN PILL [Concomitant]
  7. B-COMPLEX WITH B12 [Concomitant]
  8. CLOPIDOGREL [Concomitant]
     Active Substance: CLOPIDOGREL BISULFATE
  9. GARLIC PILL [Concomitant]
  10. TUMERIC [Concomitant]
  11. VITAMIN C [Concomitant]
     Active Substance: ASCORBIC ACID
  12. NITROGLYCERIN TRANSDERMAL DELIVERY SYSTEM [Suspect]
     Active Substance: NITROGLYCERIN
     Indication: ANGINA PECTORIS
     Route: 062
     Dates: start: 20141218, end: 20150118
  13. ENALAPRIL/MALEATE [Concomitant]
  14. FISH OIL [Concomitant]
     Active Substance: FISH OIL
  15. FINASTERIDE. [Concomitant]
     Active Substance: FINASTERIDE
  16. BAYER LOW DOSE [Concomitant]
     Active Substance: ASPIRIN
  17. FENOFIBRATE. [Concomitant]
     Active Substance: FENOFIBRATE
  18. LECITHIN [Concomitant]
     Active Substance: LECITHIN
  19. CINNAMON PILL [Concomitant]
  20. CRESTOR [Concomitant]
     Active Substance: ROSUVASTATIN CALCIUM
  21. VITAMIN D [Concomitant]
     Active Substance: CHOLECALCIFEROL
  22. COD LIVER OIL [Concomitant]
     Active Substance: COD LIVER OIL

REACTIONS (2)
  - Product adhesion issue [None]
  - Product quality issue [None]

NARRATIVE: CASE EVENT DATE: 20141218
